FAERS Safety Report 8475419-2 (Version None)
Quarter: 2012Q2

REPORT INFORMATION
  Report Type: 
  Country: None (occurrence: None)
  Receive Date: 20120628
  Receipt Date: 20120618
  Transmission Date: 20120825
  Serious: Yes (Hospitalization)
  Sender: FDA-Public Use
  Company Number: FR-ROCHE-1079305

PATIENT
  Sex: Female

DRUGS (3)
  1. XELODA [Suspect]
     Indication: COLON CANCER
     Route: 048
     Dates: start: 20120430
  2. ANTALGIC [Concomitant]
     Dates: start: 20120213
  3. LOVENOX [Concomitant]
     Dates: start: 20120213

REACTIONS (3)
  - DIARRHOEA [None]
  - DEHYDRATION [None]
  - DISORIENTATION [None]
